FAERS Safety Report 9983025 (Version 1)
Quarter: 2014Q1

REPORT INFORMATION
  Report Type: Report from Study
  Country: US (occurrence: US)
  Receive Date: 20140307
  Receipt Date: 20140307
  Transmission Date: 20141002
  Serious: No
  Sender: FDA-Public Use
  Company Number: US-ABBVIE-13P-163-1177748-00

PATIENT
  Age: 31 Year
  Sex: Female

DRUGS (10)
  1. HUMIRA [Suspect]
     Indication: CROHN^S DISEASE
     Dates: start: 20130920
  2. CLONIDINE [Suspect]
     Indication: RESTLESS LEGS SYNDROME
     Dosage: 0.2 MG PATCH
     Route: 062
  3. CLONIDINE [Suspect]
     Dosage: WORE 2 PATCHES AND CHANGED THEM EVERY 7 DAYS
     Route: 062
  4. CLONAZEPAM [Suspect]
     Indication: RESTLESS LEGS SYNDROME
     Dates: end: 20131126
  5. CLONAZEPAM [Suspect]
     Dates: start: 20131127
  6. NEURONTIN [Concomitant]
     Indication: FIBROMYALGIA
  7. AMBIEN [Concomitant]
     Indication: INSOMNIA
  8. DICYCLOMINE [Concomitant]
     Indication: INFLAMMATION
     Dates: end: 201310
  9. DICYCLOMINE [Concomitant]
     Indication: CROHN^S DISEASE
  10. PROZAC [Concomitant]
     Indication: PRODUCT USED FOR UNKNOWN INDICATION
     Dates: end: 201311

REACTIONS (5)
  - Incorrect drug administration duration [Unknown]
  - Diarrhoea [Not Recovered/Not Resolved]
  - Abdominal pain [Not Recovered/Not Resolved]
  - Restless legs syndrome [Not Recovered/Not Resolved]
  - Drug ineffective [Unknown]
